FAERS Safety Report 12897104 (Version 1)
Quarter: 2016Q4

REPORT INFORMATION
  Report Type: Spontaneous
  Country: US (occurrence: US)
  Receive Date: 20161029
  Receipt Date: 20161029
  Transmission Date: 20170207
  Serious: No
  Sender: FDA-Public Use
  Company Number: None

PATIENT
  Age: 37 Year
  Sex: Male
  Weight: 70 kg

DRUGS (1)
  1. PROPECIA [Suspect]
     Active Substance: FINASTERIDE
     Indication: ANDROGENETIC ALOPECIA
     Route: 048
     Dates: start: 20080101, end: 20160701

REACTIONS (11)
  - Psychosexual disorder [None]
  - Listless [None]
  - Erectile dysfunction [None]
  - Penile size reduced [None]
  - Libido decreased [None]
  - Semen volume decreased [None]
  - Testicular atrophy [None]
  - Loss of libido [None]
  - Sensory disturbance [None]
  - Orgasmic sensation decreased [None]
  - Apathy [None]
